FAERS Safety Report 6824560-6 (Version None)
Quarter: 2010Q3

REPORT INFORMATION
  Report Type: 
  Country: None (occurrence: None)
  Receive Date: 20100708
  Receipt Date: 20061102
  Transmission Date: 20110219
  Serious: No
  Sender: FDA-Public Use
  Company Number: US-PFIZER INC-2006131591

PATIENT
  Sex: Female
  Weight: 76.66 kg

DRUGS (2)
  1. CHANTIX [Suspect]
     Indication: EX-TOBACCO USER
     Route: 048
     Dates: start: 20061021
  2. DULCOLAX [Concomitant]

REACTIONS (7)
  - ABNORMAL DREAMS [None]
  - AGITATION [None]
  - ANXIETY [None]
  - CHILLS [None]
  - HEART RATE INCREASED [None]
  - HOT FLUSH [None]
  - SLEEP DISORDER [None]
